FAERS Safety Report 5087908-1 (Version None)
Quarter: 2006Q3

REPORT INFORMATION
  Report Type: 
  Country: None (occurrence: None)
  Receive Date: 20060823
  Receipt Date: 20060823
  Transmission Date: 20061208
  Serious: Yes (Death)
  Sender: FDA-Public Use
  Company Number: None

PATIENT
  Age: 48 Year
  Sex: Male
  Weight: 141.0687 kg

DRUGS (1)
  1. CLINDAMYCIN HCL [Suspect]
     Dosage: 600 MG ONE TIME IV [ ONE TIME DOSE]
     Route: 042
     Dates: start: 20051005, end: 20051005

REACTIONS (7)
  - CARDIO-RESPIRATORY ARREST [None]
  - DYSPNOEA [None]
  - ELECTROMECHANICAL DISSOCIATION [None]
  - HOT FLUSH [None]
  - LOSS OF CONSCIOUSNESS [None]
  - PROCEDURAL COMPLICATION [None]
  - VENTRICULAR FIBRILLATION [None]
